FAERS Safety Report 8193407-0 (Version None)
Quarter: 2012Q1

REPORT INFORMATION
  Report Type: 
  Country: None (occurrence: None)
  Receive Date: 20120308
  Receipt Date: 20120227
  Transmission Date: 20120608
  Serious: Yes (Hospitalization, Other)
  Sender: FDA-Public Use
  Company Number: US-SANOFI-AVENTIS-2011SA052521

PATIENT
  Age: 79 Year
  Sex: Female
  Weight: 92 kg

DRUGS (13)
  1. METOPROLOL SUCCINATE [Concomitant]
     Dates: end: 20110810
  2. PAXIL [Concomitant]
  3. CARDIZEM [Concomitant]
     Dates: end: 20110810
  4. CLONIDINE [Concomitant]
     Indication: HYPERTENSION
     Dates: end: 20110808
  5. LIPITOR [Concomitant]
     Dates: end: 20110808
  6. MULTAQ [Suspect]
     Indication: ATRIAL FLUTTER
     Route: 048
     Dates: start: 20110330, end: 20110807
  7. MULTAQ [Suspect]
     Indication: ATRIAL FIBRILLATION
     Route: 048
     Dates: start: 20110330, end: 20110807
  8. LEVOTHYROXINE SODIUM [Concomitant]
     Dates: end: 20110810
  9. DIGOXIN [Concomitant]
     Indication: ATRIAL FIBRILLATION
     Dosage: 0.25 EVERY OTHER DAY, 0125 EVERY OTHER DAY
     Dates: end: 20110808
  10. COUMADIN [Suspect]
     Route: 065
     Dates: end: 20110808
  11. LASIX [Concomitant]
     Dates: end: 20110808
  12. POTASSIUM CHLORIDE [Concomitant]
  13. SYNTHROID [Concomitant]
     Indication: HYPOTHYROIDISM

REACTIONS (12)
  - BLOOD CREATININE INCREASED [None]
  - ASTHENIA [None]
  - RHABDOMYOLYSIS [None]
  - INTERNATIONAL NORMALISED RATIO INCREASED [None]
  - RENAL FAILURE ACUTE [None]
  - BLOOD BILIRUBIN INCREASED [None]
  - AMMONIA INCREASED [None]
  - JAUNDICE [None]
  - BLOOD CREATINE PHOSPHOKINASE INCREASED [None]
  - HEPATIC FAILURE [None]
  - LIVER FUNCTION TEST ABNORMAL [None]
  - LETHARGY [None]
